FAERS Safety Report 9466889 (Version 1)
Quarter: 2013Q3

REPORT INFORMATION
  Report Type: Spontaneous
  Country: US (occurrence: US)
  Receive Date: 20130820
  Receipt Date: 20130820
  Transmission Date: 20140515
  Serious: Yes (Other)
  Sender: FDA-Public Use
  Company Number: US-TEVA-427140USA

PATIENT
  Sex: Female

DRUGS (8)
  1. PARAGARD 380A [Suspect]
     Indication: CONTRACEPTION
     Route: 015
     Dates: start: 20110712, end: 20130716
  2. CHASTEBERRY [Concomitant]
  3. VITAMIN B6 [Concomitant]
  4. VITAMIN B12 [Concomitant]
  5. FISH OIL [Concomitant]
  6. PRENATAL VITAMINS [Concomitant]
  7. CALCIUM [Concomitant]
  8. MAGNESIUM [Concomitant]

REACTIONS (11)
  - Blood copper increased [Unknown]
  - Nausea [Unknown]
  - Fungal infection [Unknown]
  - Anxiety [Unknown]
  - Anger [Unknown]
  - Headache [Unknown]
  - Migraine [Unknown]
  - Confusional state [Unknown]
  - Premenstrual dysphoric disorder [Unknown]
  - Panic attack [Unknown]
  - Crying [Unknown]
